FAERS Safety Report 24692031 (Version 1)
Quarter: 2024Q4

REPORT INFORMATION
  Report Type: Other
  Country: US (occurrence: US)
  Receive Date: 20241203
  Receipt Date: 20241203
  Transmission Date: 20250115
  Serious: Yes (Hospitalization)
  Sender: HLS THERAPEUTICS
  Company Number: US-HLS-202401644

PATIENT
  Age: 54 Year
  Sex: Female

DRUGS (4)
  1. CLOZAPINE [Suspect]
     Active Substance: CLOZAPINE
     Indication: Schizophrenia
     Dosage: DOSE BEING GRADUALLY INCREASED FROM 50MG TO 400 MG ON A WEEKLY BASIS.
     Route: 065
  2. CLOZAPINE [Suspect]
     Active Substance: CLOZAPINE
     Indication: Schizophrenia
     Dosage: TAPERED OFF BY 100 MG WEEKLY AND EVENTUALLY  STOPPED.
     Route: 065
  3. ESCITALOPRAM [Concomitant]
     Active Substance: ESCITALOPRAM OXALATE
     Indication: Schizophrenia
     Route: 065
  4. CLONAZEPAM [Concomitant]
     Active Substance: CLONAZEPAM
     Indication: Myoclonus
     Dosage: 0.5 MG TWICE DAILY
     Route: 065

REACTIONS (4)
  - Gait disturbance [Recovering/Resolving]
  - Dyskinesia [Recovering/Resolving]
  - Myoclonus [Recovering/Resolving]
  - Fall [Recovering/Resolving]
